FAERS Safety Report 22325524 (Version 1)
Quarter: 2023Q2

REPORT INFORMATION
  Report Type: Spontaneous
  Country: US (occurrence: US)
  Receive Date: 20230516
  Receipt Date: 20230516
  Transmission Date: 20230722
  Serious: Yes (Other)
  Sender: FDA-Public Use
  Company Number: US-APIL-2314063US

PATIENT
  Sex: Female

DRUGS (1)
  1. REFRESH OPTIVE GEL DROPS [Suspect]
     Active Substance: CARBOXYMETHYLCELLULOSE SODIUM\GLYCERIN
     Indication: Product used for unknown indication
     Route: 047

REACTIONS (7)
  - Blindness transient [Recovered/Resolved]
  - Dizziness [Unknown]
  - Dysstasia [Unknown]
  - Wrong technique in device usage process [Unknown]
  - Incorrect dose administered [Unknown]
  - Vision blurred [Unknown]
  - Product container issue [Unknown]

NARRATIVE: CASE EVENT DATE: 20230508
